FAERS Safety Report 12484447 (Version 8)
Quarter: 2017Q1

REPORT INFORMATION
  Report Type: Report from Study
  Country: JP (occurrence: JP)
  Receive Date: 20160621
  Receipt Date: 20170331
  Transmission Date: 20170428
  Serious: Yes (Hospitalization, Other)
  Sender: FDA-Public Use
  Company Number: JP-PFIZER INC-2016303751

PATIENT
  Age: 59 Year
  Sex: Female
  Weight: 34 kg

DRUGS (23)
  1. PREDONINE [Suspect]
     Active Substance: PREDNISOLONE
     Indication: POLYMYALGIA RHEUMATICA
     Dosage: 20 MG, DAILY
     Route: 048
     Dates: start: 20160409, end: 20160516
  2. CALONAL [Concomitant]
     Active Substance: ACETAMINOPHEN
     Route: 048
  3. RIMATIL [Suspect]
     Active Substance: BUCILLAMINE
     Indication: POLYMYALGIA RHEUMATICA
  4. TRAMAL [Concomitant]
     Active Substance: TRAMADOL
     Route: 048
  5. BENET [Concomitant]
     Active Substance: RISEDRONATE SODIUM
     Route: 048
  6. DEPAS [Concomitant]
     Active Substance: ETIZOLAM
     Route: 048
  7. BIOFERMIN /01617201/ [Concomitant]
     Active Substance: BACILLUS SUBTILIS\LACTOBACILLUS ACIDOPHILUS\STREPTOCOCCUS FAECAIS
  8. XELJANZ [Suspect]
     Active Substance: TOFACITINIB CITRATE
     Indication: RHEUMATOID ARTHRITIS
     Dosage: 5 MG, 1X/DAY
     Route: 048
     Dates: start: 20151107, end: 20151120
  9. METHOTREXATE SODIUM. [Suspect]
     Active Substance: METHOTREXATE SODIUM
     Indication: RHEUMATOID ARTHRITIS
     Dosage: 12 MG, WEEKLY
     Dates: end: 20160623
  10. RIMATIL [Suspect]
     Active Substance: BUCILLAMINE
     Indication: RHEUMATOID ARTHRITIS
     Dosage: 200 MG, UNK
     Dates: end: 20160623
  11. PROGRAF [Suspect]
     Active Substance: TACROLIMUS\TACROLIMUS ANHYDROUS
     Dosage: 3 MG, UNK
     Dates: start: 20160115, end: 20160623
  12. LOXONIN [Concomitant]
     Active Substance: LOXOPROFEN SODIUM
     Route: 048
  13. MUCOSTA [Concomitant]
     Active Substance: REBAMIPIDE
     Route: 048
  14. PROGRAF [Suspect]
     Active Substance: TACROLIMUS\TACROLIMUS ANHYDROUS
     Indication: POLYMYALGIA RHEUMATICA
     Dosage: 3 MG, UNK
     Dates: start: 20151127, end: 20151203
  15. PRIMPERAN [Concomitant]
     Active Substance: METOCLOPRAMIDE HYDROCHLORIDE
     Route: 048
  16. RHYTHMY [Concomitant]
     Active Substance: RILMAZAFONE HYDROCHLORIDE
     Route: 048
  17. XELJANZ [Suspect]
     Active Substance: TOFACITINIB CITRATE
     Dosage: 5 MG, 1X/DAY
     Route: 048
     Dates: start: 20151204, end: 20151224
  18. PREDONINE [Suspect]
     Active Substance: PREDNISOLONE
     Dosage: 17 MG, DAILY
     Route: 048
     Dates: start: 20160517, end: 20160518
  19. PROGRAF [Suspect]
     Active Substance: TACROLIMUS\TACROLIMUS ANHYDROUS
     Indication: RHEUMATOID ARTHRITIS
     Dosage: 3 MG, UNK
     Dates: end: 20151106
  20. FAMOTIDINE. [Concomitant]
     Active Substance: FAMOTIDINE
     Route: 048
  21. METHOTREXATE SODIUM. [Suspect]
     Active Substance: METHOTREXATE SODIUM
     Indication: POLYMYALGIA RHEUMATICA
  22. PREDONINE [Suspect]
     Active Substance: PREDNISOLONE
     Indication: RHEUMATOID ARTHRITIS
     Dosage: 10 MG, DAILY
     Route: 048
     Dates: end: 20160408
  23. PREDONINE [Suspect]
     Active Substance: PREDNISOLONE
     Dosage: 20 MG, DAILY
     Route: 048
     Dates: start: 20160519, end: 20160622

REACTIONS (3)
  - Arthritis bacterial [Recovered/Resolved]
  - Pneumocystis jirovecii pneumonia [Recovering/Resolving]
  - Hyperosmolar hyperglycaemic state [Recovered/Resolved]

NARRATIVE: CASE EVENT DATE: 20151224
